FAERS Safety Report 18728548 (Version 1)
Quarter: 2021Q1

REPORT INFORMATION
  Report Type: Other
  Country: US (occurrence: US)
  Receive Date: 20210112
  Receipt Date: 20210112
  Transmission Date: 20210419
  Serious: Yes (Hospitalization, Other)
  Sender: FDA-Public Use
  Company Number: US-ROCHE-2334943

PATIENT
  Sex: Female
  Weight: 108.05 kg

DRUGS (23)
  1. VITAMIN D3 [Concomitant]
     Active Substance: CHOLECALCIFEROL
     Route: 048
  2. TYLENOL ARTHRITIS PAIN [Concomitant]
     Active Substance: ACETAMINOPHEN
  3. VITAMIN D3 [Concomitant]
     Active Substance: CHOLECALCIFEROL
     Dosage: 5000 IU
     Route: 048
  4. XYZAL ALLERGY 24HR [Concomitant]
     Active Substance: LEVOCETIRIZINE DIHYDROCHLORIDE
     Dosage: 1 TABLET IN EVENING
     Route: 048
  5. GABAPENTIN. [Concomitant]
     Active Substance: GABAPENTIN
     Indication: MULTIPLE SCLEROSIS
     Dosage: 2 CAPSULES IN THE MORNING AND 3 CAPSULES IN EVENING AS DIRECTED
     Route: 048
  6. OXYBUTYNIN CHLORIDE ER [Concomitant]
     Active Substance: OXYBUTYNIN CHLORIDE
     Indication: POLLAKIURIA
     Route: 048
  7. MODAFINIL. [Concomitant]
     Active Substance: MODAFINIL
     Indication: FATIGUE
     Dosage: AS DIRECTED ORALLY THEN ONE TAB AM
     Route: 048
     Dates: start: 2019
  8. OCREVUS [Suspect]
     Active Substance: OCRELIZUMAB
     Route: 042
     Dates: start: 2017
  9. CYANOCOBALAMIN. [Concomitant]
     Active Substance: CYANOCOBALAMIN
     Dosage: 1000 MCG/ ML INJECTION
     Route: 058
  10. PAROXETIN [Concomitant]
     Active Substance: PAROXETINE HYDROCHLORIDE
     Indication: MUSCLE TWITCHING
     Route: 048
     Dates: start: 2003
  11. OCREVUS [Suspect]
     Active Substance: OCRELIZUMAB
     Indication: SECONDARY PROGRESSIVE MULTIPLE SCLEROSIS
     Dosage: PRESCRIBED WITH 300 MG ON DAY 1 AND 15, THEN 600 MG ONCE IN 6 MONTHS, SUBSEQUENT DOSE ON: 05/JUN/201
     Route: 042
     Dates: start: 20171116
  12. MACROBID [Concomitant]
     Active Substance: NITROFURANTOIN\NITROFURANTOIN MONOHYDRATE
     Dosage: WITH FOOD
     Route: 048
  13. BACLOFEN. [Concomitant]
     Active Substance: BACLOFEN
     Dosage: 1 TABLET IN MORNING AND 2 TABLETS IN EVENING AS DIRECTED
     Route: 048
     Dates: start: 2003
  14. GABAPENTIN. [Concomitant]
     Active Substance: GABAPENTIN
     Route: 048
     Dates: start: 2003
  15. DALFAMPRIDINE. [Concomitant]
     Active Substance: DALFAMPRIDINE
     Route: 048
  16. MAGNESIUM [Concomitant]
     Active Substance: MAGNESIUM
     Route: 048
  17. OCREVUS [Suspect]
     Active Substance: OCRELIZUMAB
     Route: 042
  18. OXYBUTYNIN CHLORIDE ER [Concomitant]
     Active Substance: OXYBUTYNIN CHLORIDE
     Route: 048
  19. ZINC. [Concomitant]
     Active Substance: ZINC
     Route: 048
  20. PAROXETINE HCL [Concomitant]
     Active Substance: PAROXETINE HYDROCHLORIDE
     Route: 048
  21. ADDERALL [Concomitant]
     Active Substance: AMPHETAMINE ASPARTATE\AMPHETAMINE SULFATE\DEXTROAMPHETAMINE SACCHARATE\DEXTROAMPHETAMINE SULFATE
     Route: 048
  22. BACLOFEN. [Concomitant]
     Active Substance: BACLOFEN
     Indication: MULTIPLE SCLEROSIS
     Dosage: 1 TABLET IN MORNING AND 2 TABLETS IN EVENING AS DIRECTED
     Route: 048
  23. MAGNESIUM [Concomitant]
     Active Substance: MAGNESIUM
     Route: 048

REACTIONS (9)
  - Sinusitis [Recovering/Resolving]
  - Headache [Recovering/Resolving]
  - Cervical spinal stenosis [Unknown]
  - Intentional product use issue [Unknown]
  - Kidney infection [Recovering/Resolving]
  - Diabetes mellitus [Unknown]
  - Multiple sclerosis relapse [Unknown]
  - Fatigue [Not Recovered/Not Resolved]
  - Off label use [Unknown]

NARRATIVE: CASE EVENT DATE: 2019
